FAERS Safety Report 21298449 (Version 1)
Quarter: 2022Q3

REPORT INFORMATION
  Report Type: Spontaneous
  Country: GR (occurrence: GR)
  Receive Date: 20220906
  Receipt Date: 20220906
  Transmission Date: 20221027
  Serious: Yes (Other)
  Sender: FDA-Public Use
  Company Number: GR-AMGEN-GRCSP2022126936

PATIENT
  Age: 35 Year
  Sex: Female

DRUGS (1)
  1. ADALIMUMAB [Suspect]
     Active Substance: ADALIMUMAB
     Indication: Crohn^s disease
     Dosage: UNK
     Route: 065

REACTIONS (5)
  - Ileus [Unknown]
  - Intestinal anastomosis complication [Unknown]
  - Abdominal adhesions [Unknown]
  - Salpingitis [Unknown]
  - Peritoneal cyst [Unknown]

NARRATIVE: CASE EVENT DATE: 20170101
